FAERS Safety Report 7651747-5 (Version None)
Quarter: 2011Q3

REPORT INFORMATION
  Report Type: 
  Country: None (occurrence: None)
  Receive Date: 20110802
  Receipt Date: 20110727
  Transmission Date: 20111222
  Serious: Yes (Other)
  Sender: FDA-Public Use
  Company Number: JP-MERCK-1107USA03622

PATIENT
  Age: 33 Year
  Sex: Male

DRUGS (7)
  1. ADALAT [Concomitant]
     Route: 048
  2. TELMISARTAN [Concomitant]
     Route: 048
     Dates: start: 20110412
  3. ZETIA [Concomitant]
     Route: 048
  4. PLAVIX [Concomitant]
     Route: 048
  5. PEPCID RPD [Suspect]
     Route: 048
     Dates: start: 20100707
  6. LIPITOR [Suspect]
     Route: 048
     Dates: start: 20100707
  7. ASPIRIN [Concomitant]
     Route: 048

REACTIONS (1)
  - RHABDOMYOLYSIS [None]
